FAERS Safety Report 20611404 (Version 3)
Quarter: 2022Q2

REPORT INFORMATION
  Report Type: Spontaneous
  Country: FR (occurrence: FR)
  Receive Date: 20220318
  Receipt Date: 20220509
  Transmission Date: 20220721
  Serious: Yes (Death, Hospitalization, Other)
  Sender: FDA-Public Use
  Company Number: None

PATIENT
  Age: 81 Year
  Sex: Female

DRUGS (2)
  1. ARIXTRA [Interacting]
     Active Substance: FONDAPARINUX SODIUM
     Indication: Product used for unknown indication
     Dosage: 7.5 MILLIGRAM, QD (1 SC INJ/DAY)
     Route: 058
     Dates: start: 20210625
  2. XARELTO [Interacting]
     Active Substance: RIVAROXABAN
     Indication: Product used for unknown indication
     Dosage: 15 MILLIGRAM, BID (15 MG MORNING AND EVENING)
     Route: 048
     Dates: start: 20210626, end: 20210628

REACTIONS (4)
  - Cerebral haemorrhage [Fatal]
  - Accidental overdose [Fatal]
  - Product prescribing error [Fatal]
  - Drug interaction [Fatal]

NARRATIVE: CASE EVENT DATE: 20210626
